FAERS Safety Report 5369727-1 (Version None)
Quarter: 2007Q2

REPORT INFORMATION
  Report Type: 
  Country: None (occurrence: None)
  Receive Date: 20070625
  Receipt Date: 20070613
  Transmission Date: 20071010
  Serious: Yes (Other)
  Sender: FDA-Public Use
  Company Number: US-PFIZER INC-2007049466

PATIENT
  Sex: Female
  Weight: 61.2 kg

DRUGS (1)
  1. CHANTIX [Suspect]
     Indication: EX-SMOKER
     Dates: start: 20070528, end: 20070529

REACTIONS (4)
  - HEADACHE [None]
  - HYPERSENSITIVITY [None]
  - SWOLLEN TONGUE [None]
  - URTICARIA [None]
